FAERS Safety Report 8168247-9 (Version None)
Quarter: 2012Q1

REPORT INFORMATION
  Report Type: 
  Country: None (occurrence: None)
  Receive Date: 20120227
  Receipt Date: 20120225
  Transmission Date: 20120608
  Serious: Yes (Death)
  Sender: FDA-Public Use
  Company Number: PHHY2012PK016204

PATIENT
  Age: 91 Year
  Sex: Male

DRUGS (2)
  1. CALCIUM [Concomitant]
     Indication: OSTEOPOROSIS
     Route: 048
  2. ZOLEDRONOC ACID [Suspect]
     Indication: OSTEOPOROSIS
     Dosage: 5 MG, ONCE A YEAR
     Route: 042
     Dates: start: 20110308

REACTIONS (1)
  - DEATH [None]
